FAERS Safety Report 7529077-1 (Version None)
Quarter: 2011Q2

REPORT INFORMATION
  Report Type: 
  Country: None (occurrence: None)
  Receive Date: 20110607
  Receipt Date: 20110601
  Transmission Date: 20111010
  Serious: Yes (Death)
  Sender: FDA-Public Use
  Company Number: PHHY2010MX64114

PATIENT
  Sex: Male

DRUGS (1)
  1. ZOMETA [Suspect]
     Dosage: 4 MG/5 ML PER MONTH
     Dates: start: 20090201

REACTIONS (7)
  - CEREBRAL ARTERY EMBOLISM [None]
  - DRUG INEFFECTIVE [None]
  - NEOPLASM PROGRESSION [None]
  - METASTASES TO BONE [None]
  - BONE PAIN [None]
  - CEREBRAL INFARCTION [None]
  - NEOPLASM MALIGNANT [None]
